FAERS Safety Report 16960771 (Version 1)
Quarter: 2019Q4

REPORT INFORMATION
  Report Type: Spontaneous
  Country: US (occurrence: US)
  Receive Date: 20191025
  Receipt Date: 20191025
  Transmission Date: 20200122
  Serious: Yes (Life-Threatening, Hospitalization, Other)
  Sender: FDA-Public Use
  Company Number: US-MACLEODS PHARMACEUTICALS US LTD-MAC2019023519

PATIENT

DRUGS (2)
  1. BICARBONATE [Suspect]
     Active Substance: SODIUM BICARBONATE
     Indication: LACTIC ACIDOSIS
     Dosage: HIGH BICARBONATE DIALYSATE (PRIMASOL BGK 4/2.5) WAS USED FOR CRRT
     Route: 065
  2. METFORMIN [Suspect]
     Active Substance: METFORMIN HYDROCHLORIDE
     Indication: TYPE 2 DIABETES MELLITUS
     Dosage: 2000 MILLIGRAM, QD
     Route: 065

REACTIONS (6)
  - Lactic acidosis [Recovering/Resolving]
  - Respiratory failure [Recovering/Resolving]
  - Renal impairment [Recovered/Resolved]
  - Pyelonephritis [Recovering/Resolving]
  - Septic shock [Recovering/Resolving]
  - Encephalopathy [Recovering/Resolving]
